FAERS Safety Report 8509183-5 (Version None)
Quarter: 2012Q3

REPORT INFORMATION
  Report Type: 
  Country: None (occurrence: None)
  Receive Date: 20120703
  Receipt Date: 20120621
  Transmission Date: 20120928
  Serious: Yes (Hospitalization)
  Sender: FDA-Public Use
  Company Number: 1326851

PATIENT
  Age: 52 Year
  Sex: Male

DRUGS (2)
  1. GEMCITABINE HYDROCHLORIDE [Suspect]
     Indication: BILIARY CANCER METASTATIC
     Dosage: 1000 MG/M^2
  2. OXALIPLATIN [Suspect]
     Indication: BILIARY CANCER METASTATIC
     Dosage: 100 MG/M^2, INTRAVENOUS DRIP
     Route: 041

REACTIONS (10)
  - HYPERTENSION [None]
  - RENAL FAILURE ACUTE [None]
  - GENERAL PHYSICAL HEALTH DETERIORATION [None]
  - THROMBOCYTOPENIA [None]
  - POTENTIATING DRUG INTERACTION [None]
  - NEOPLASM PROGRESSION [None]
  - HAEMOLYTIC URAEMIC SYNDROME [None]
  - TOXICITY TO VARIOUS AGENTS [None]
  - BILIARY CANCER METASTATIC [None]
  - ANTIBODY TEST POSITIVE [None]
